FAERS Safety Report 5607950-9 (Version None)
Quarter: 2008Q1

REPORT INFORMATION
  Report Type: 
  Country: None (occurrence: None)
  Receive Date: 20080130
  Receipt Date: 20080121
  Transmission Date: 20080703
  Serious: Yes (Death, Hospitalization)
  Sender: FDA-Public Use
  Company Number: NL-AVENTIS-200810626GDDC

PATIENT
  Age: 71 Year
  Sex: Male

DRUGS (9)
  1. DOCETAXEL [Suspect]
     Route: 042
     Dates: start: 20071204, end: 20071228
  2. PREDNISON [Suspect]
     Route: 048
     Dates: start: 20071204, end: 20080115
  3. RISEDRONATE SODIUM [Suspect]
     Route: 048
     Dates: start: 20071204, end: 20080115
  4. ESOMEPRAZOLE MAGNESIUM [Concomitant]
     Dates: start: 20071228, end: 20080118
  5. OXYCODON [Concomitant]
     Dates: start: 20071228, end: 20080119
  6. OXYNORM [Concomitant]
  7. PARACETAMOL [Concomitant]
     Dates: end: 20080119
  8. MOVICOLON [Concomitant]
     Dosage: DOSE: UNK
     Dates: start: 20071228
  9. CALCICHEW                          /00108001/ [Concomitant]
     Dates: start: 20071204

REACTIONS (4)
  - ARTHRALGIA [None]
  - CONSTIPATION [None]
  - DEHYDRATION [None]
  - HAEMATEMESIS [None]
